FAERS Safety Report 23977223 (Version 1)
Quarter: 2024Q2

REPORT INFORMATION
  Report Type: Report from Study
  Country: US (occurrence: US)
  Receive Date: 20240614
  Receipt Date: 20240614
  Transmission Date: 20240716
  Serious: Yes (Death)
  Sender: FDA-Public Use
  Company Number: US-002147023-PHHY2019US190938

PATIENT
  Age: 29 Year
  Sex: Male

DRUGS (1)
  1. TOBREX [Suspect]
     Active Substance: TOBRAMYCIN
     Indication: Product used for unknown indication
     Dosage: 1 DF (300/5 MG/ML), BID
     Route: 065

REACTIONS (1)
  - Death [Fatal]
